FAERS Safety Report 4600977-5 (Version None)
Quarter: 2005Q1

REPORT INFORMATION
  Report Type: 
  Country: None (occurrence: None)
  Receive Date: 20050204
  Receipt Date: 20041208
  Transmission Date: 20050727
  Serious: Yes (Hospitalization, Other)
  Sender: FDA-Public Use
  Company Number: USA041184209

PATIENT
  Age: 49 Year
  Sex: Female
  Weight: 60 kg

DRUGS (2)
  1. FORTEO [Suspect]
     Indication: OSTEOPOROSIS
     Dosage: 20 UG/1 DAY
     Dates: start: 20030701
  2. EVISTA [Suspect]
     Dates: start: 20041101

REACTIONS (14)
  - BLOOD PRESSURE DIASTOLIC INCREASED [None]
  - BODY HEIGHT DECREASED [None]
  - BONE DENSITY DECREASED [None]
  - COLD SWEAT [None]
  - CONTUSION [None]
  - DERMATITIS EXFOLIATIVE [None]
  - DRUG INEFFECTIVE [None]
  - DYSPEPSIA [None]
  - HAEMATEMESIS [None]
  - HYPERHIDROSIS [None]
  - SKIN DISCOLOURATION [None]
  - SWELLING [None]
  - THROMBOSIS [None]
  - TINNITUS [None]
